FAERS Safety Report 20624069 (Version 1)
Quarter: 2022Q1

REPORT INFORMATION
  Report Type: Spontaneous
  Country: US (occurrence: US)
  Receive Date: 20220322
  Receipt Date: 20220322
  Transmission Date: 20220423
  Serious: No
  Sender: FDA-Public Use
  Company Number: US-BioDelivery Sciences International-2021BDSI0512

PATIENT
  Age: 78 Year
  Sex: Female
  Weight: 63.560 kg

DRUGS (3)
  1. SYMPROIC [Suspect]
     Active Substance: NALDEMEDINE
     Indication: Constipation
     Dosage: UNKNOWN
     Route: 048
     Dates: start: 20211102, end: 20211102
  2. LEXAPRO [Concomitant]
     Active Substance: ESCITALOPRAM OXALATE
     Indication: Depression
     Route: 048
     Dates: start: 2020
  3. LIPITOR [Concomitant]
     Active Substance: ATORVASTATIN CALCIUM
     Indication: Blood cholesterol
     Route: 048
     Dates: start: 2021

REACTIONS (4)
  - Vomiting [Recovered/Resolved]
  - Headache [Recovered/Resolved]
  - Chills [Recovered/Resolved]
  - Diarrhoea [Recovered/Resolved]

NARRATIVE: CASE EVENT DATE: 20211102
